FAERS Safety Report 7527789-7 (Version None)
Quarter: 2011Q2

REPORT INFORMATION
  Report Type: 
  Country: None (occurrence: None)
  Receive Date: 20110607
  Receipt Date: 20110525
  Transmission Date: 20111010
  Serious: Yes (Other)
  Sender: FDA-Public Use
  Company Number: US-ASTRAZENECA-2011SE32271

PATIENT
  Sex: Female

DRUGS (3)
  1. ALENDRONATE SODIUM [Concomitant]
  2. NEXIUM [Suspect]
     Dosage: TWICE DAILY
     Route: 048
     Dates: start: 20050101
  3. VITAMIN D [Concomitant]

REACTIONS (1)
  - BONE DENSITY DECREASED [None]
